FAERS Safety Report 5466255-X (Version None)
Quarter: 2007Q3

REPORT INFORMATION
  Report Type: 
  Country: None (occurrence: None)
  Receive Date: 20070924
  Receipt Date: 20070912
  Transmission Date: 20080115
  Serious: Yes (Other)
  Sender: FDA-Public Use
  Company Number: US-PFIZER INC-2007077549

PATIENT
  Sex: Female

DRUGS (2)
  1. VFEND [Suspect]
     Indication: LUNG INFECTION
     Dosage: FREQ:BID EVERY DAY
     Dates: start: 20070719, end: 20070101
  2. MORPHINE [Concomitant]
     Indication: BACK DISORDER
     Dosage: TEXT:1 PILL-FREQ:EVERY DAY

REACTIONS (3)
  - OPTIC NEURITIS [None]
  - OSTEOMYELITIS [None]
  - TRANSPLANT [None]
